FAERS Safety Report 6150489-5 (Version None)
Quarter: 2009Q2

REPORT INFORMATION
  Report Type: 
  Country: None (occurrence: None)
  Receive Date: 20090409
  Receipt Date: 20090402
  Transmission Date: 20091009
  Serious: Yes (Hospitalization, Other)
  Sender: FDA-Public Use
  Company Number: AU-AVENTIS-200913418GDDC

PATIENT
  Age: 62 Year
  Sex: Male

DRUGS (9)
  1. LANTUS [Suspect]
     Route: 058
     Dates: start: 20060930
  2. AUTOPEN INSULIN INJECTION PEN [Suspect]
  3. MICARDIS [Suspect]
  4. METFORMIN HCL [Concomitant]
  5. WARFARIN SODIUM [Concomitant]
  6. AMIODARONE HCL [Concomitant]
  7. LIPITOR [Concomitant]
  8. FRUSEMIDE [Concomitant]
  9. APIDRA [Concomitant]
     Dosage: FREQUENCY: BEFORE MEALS
     Route: 058

REACTIONS (1)
  - ATRIAL FIBRILLATION [None]
